FAERS Safety Report 10779371 (Version 1)
Quarter: 2015Q1

REPORT INFORMATION
  Report Type: Report from Study
  Country: GB (occurrence: GB)
  Receive Date: 20150210
  Receipt Date: 20150210
  Transmission Date: 20150721
  Serious: Yes (Death, Life-Threatening, Hospitalization)
  Sender: FDA-Public Use
  Company Number: GB-CELGENE-167-C5013-13044940

PATIENT
  Age: 73 Year
  Sex: Female
  Weight: 86 kg

DRUGS (7)
  1. CC-5013 [Suspect]
     Active Substance: LENALIDOMIDE
     Dosage: 75 MICROGRAM
     Route: 048
     Dates: start: 20130403, end: 20130427
  2. NAPROXEN. [Concomitant]
     Active Substance: NAPROXEN
     Indication: MUSCULOSKELETAL PAIN
     Route: 048
     Dates: start: 20130318
  3. THYROXIN [Concomitant]
     Active Substance: LEVOTHYROXINE
     Indication: HYPOTHYROIDISM
     Dosage: 15 MILLIGRAM
     Route: 048
     Dates: start: 2003
  4. CC-5013 [Suspect]
     Active Substance: LENALIDOMIDE
     Indication: MYELODYSPLASTIC SYNDROME
     Route: 048
     Dates: start: 20130206
  5. COCODAMOL [Concomitant]
     Active Substance: ACETAMINOPHEN\CODEINE PHOSPHATE
     Indication: BACK PAIN
     Dosage: 8/500
     Route: 048
     Dates: start: 20130325
  6. COCODAMOL [Concomitant]
     Active Substance: ACETAMINOPHEN\CODEINE PHOSPHATE
     Indication: MUSCULOSKELETAL CHEST PAIN
  7. LANSOPRAZOLE. [Concomitant]
     Active Substance: LANSOPRAZOLE
     Indication: GASTROOESOPHAGEAL REFLUX PROPHYLAXIS
     Route: 048
     Dates: start: 2009

REACTIONS (3)
  - Multi-organ failure [Fatal]
  - Bronchopulmonary aspergillosis [Fatal]
  - Gastrointestinal necrosis [Fatal]

NARRATIVE: CASE EVENT DATE: 20130427
